FAERS Safety Report 4625997-6 (Version None)
Quarter: 2005Q1

REPORT INFORMATION
  Report Type: 
  Country: None (occurrence: None)
  Receive Date: 20050330
  Receipt Date: 20050311
  Transmission Date: 20050727
  Serious: Yes (Hospitalization, Other)
  Sender: FDA-Public Use
  Company Number: USA030946804

PATIENT
  Age: 61 Year
  Sex: Female
  Weight: 93 kg

DRUGS (4)
  1. HUMULIN 70/30 [Suspect]
     Indication: DIABETES MELLITUS
     Dosage: 56 U/DAY
     Dates: start: 20020301
  2. HUMULIN R [Suspect]
     Indication: DIABETES MELLITUS
  3. HUMULIN N [Suspect]
     Indication: DIABETES MELLITUS
  4. ACTOS [Concomitant]

REACTIONS (12)
  - ASTHMA [None]
  - BLINDNESS [None]
  - BLOOD GLUCOSE INCREASED [None]
  - CARDIAC FAILURE CONGESTIVE [None]
  - CATARACT [None]
  - CEREBROVASCULAR ACCIDENT [None]
  - FLUID RETENTION [None]
  - HYPERTENSION [None]
  - HYPOACUSIS [None]
  - INTENTIONAL MISUSE [None]
  - OCULAR VASCULAR DISORDER [None]
  - PAIN IN EXTREMITY [None]
